FAERS Safety Report 23223043 (Version 2)
Quarter: 2023Q4

REPORT INFORMATION
  Report Type: Spontaneous
  Country: DE (occurrence: DE)
  Receive Date: 20231123
  Receipt Date: 20231219
  Transmission Date: 20240109
  Serious: Yes (Other)
  Sender: FDA-Public Use
  Company Number: DE-BRISTOL-MYERS SQUIBB COMPANY-2023-159565

PATIENT
  Age: 76 Year
  Sex: Female

DRUGS (4)
  1. PEMBROLIZUMAB [Suspect]
     Active Substance: PEMBROLIZUMAB
     Indication: Malignant melanoma
     Dosage: UNK UNK, Q3W
     Dates: start: 202001, end: 202003
  2. NIVOLUMAB [Suspect]
     Active Substance: NIVOLUMAB
     Indication: Malignant melanoma
     Dosage: UNK
     Dates: start: 202003, end: 202006
  3. NIVOLUMAB [Suspect]
     Active Substance: NIVOLUMAB
     Dosage: MAINTENANCE
     Dates: start: 202007
  4. IPILIMUMAB [Suspect]
     Active Substance: IPILIMUMAB
     Indication: Malignant melanoma
     Dosage: UNK
     Dates: start: 202003, end: 202006

REACTIONS (5)
  - Lymphadenopathy [Unknown]
  - Pathological fracture [Unknown]
  - Necrotic lymphadenopathy [Unknown]
  - Haematoma [Unknown]
  - Seroma [Unknown]

NARRATIVE: CASE EVENT DATE: 20200801
